FAERS Safety Report 9038394 (Version 1)
Quarter: 2013Q1

REPORT INFORMATION
  Report Type: Spontaneous
  Country: PR (occurrence: PR)
  Receive Date: 20130130
  Receipt Date: 20130130
  Transmission Date: 20140127
  Serious: Yes (Other)
  Sender: FDA-Public Use
  Company Number: PR-ABBOTT-12P-131-0927289-00

PATIENT
  Sex: Female
  Weight: 57.66 kg

DRUGS (11)
  1. HUMIRA 40 MG/0.8 ML PEN [Suspect]
     Indication: RHEUMATOID ARTHRITIS
     Route: 058
     Dates: start: 2011, end: 201202
  2. HYZAAR [Concomitant]
     Indication: HYPERTENSION
     Dosage: 100/25MG, 1 TABLET DAILY
     Route: 048
  3. FOLIC ACID [Concomitant]
     Indication: CARDIAC DISORDER
     Route: 048
     Dates: start: 2011
  4. PRAVACHOL [Concomitant]
     Indication: HYPERCHOLESTEROLAEMIA
     Dosage: AT BEDTIME
     Route: 048
     Dates: start: 2011
  5. CALCIUM 600+VIT D [Concomitant]
     Indication: OSTEOPOROSIS
     Route: 048
  6. VIT E [Concomitant]
     Indication: OSTEOPOROSIS
     Route: 048
  7. OMEGA 3-6-9 [Concomitant]
     Indication: HYPERCHOLESTEROLAEMIA
     Route: 048
  8. PLAVIX [Concomitant]
     Indication: CARDIOVASCULAR DISORDER
     Route: 048
     Dates: start: 2010
  9. ALBUTEROL [Concomitant]
     Indication: EMPHYSEMA
     Dosage: 1 THERAPY THREE TIMES A DAY. ORAL INHALATION
     Route: 055
  10. SPIRIVA [Concomitant]
     Indication: EMPHYSEMA
     Dosage: 1 ORAL INHALATION DAILY
     Route: 055
     Dates: start: 201203
  11. PREDNISONE [Concomitant]
     Indication: RHEUMATOID ARTHRITIS
     Dosage: 1 TABLET DAILY X 3 DAYS AS NEEDED
     Route: 048

REACTIONS (6)
  - Coronary artery disease [Unknown]
  - Chest pain [Unknown]
  - Chest pain [Unknown]
  - Nasopharyngitis [Recovered/Resolved]
  - Nasopharyngitis [Recovered/Resolved]
  - Nasopharyngitis [Recovered/Resolved]
